FAERS Safety Report 4612017-2 (Version None)
Quarter: 2005Q2

REPORT INFORMATION
  Report Type: 
  Country: None (occurrence: None)
  Receive Date: 20050308
  Receipt Date: 20050105
  Transmission Date: 20051028
  Serious: Yes (Other)
  Sender: FDA-Public Use
  Company Number: 2005UW00221

PATIENT
  Age: 81 Year
  Sex: Female
  Weight: 72.574 kg

DRUGS (4)
  1. CRESTOR [Suspect]
     Indication: BLOOD CHOLESTEROL INCREASED
     Dosage: 10 MG PO
     Route: 048
     Dates: start: 20041001
  2. GLUCOVANCE [Concomitant]
  3. VASOTEC [Concomitant]
  4. SYNTHROID [Concomitant]

REACTIONS (3)
  - ABDOMINAL PAIN [None]
  - TOOTH EXTRACTION [None]
  - WEIGHT DECREASED [None]
